FAERS Safety Report 12434423 (Version 1)
Quarter: 2016Q2

REPORT INFORMATION
  Report Type: Spontaneous
  Country: US (occurrence: US)
  Receive Date: 20160603
  Receipt Date: 20160603
  Transmission Date: 20160815
  Serious: No
  Sender: FDA-Public Use
  Company Number: US-OTSUKA-2015_012938

PATIENT

DRUGS (3)
  1. SAMSCA [Suspect]
     Active Substance: TOLVAPTAN
     Indication: HYPONATRAEMIA
     Dosage: 15 MG, EVERY 3 DAYS
     Route: 048
     Dates: start: 201508
  2. SAMSCA [Suspect]
     Active Substance: TOLVAPTAN
     Indication: SMALL CELL LUNG CANCER
     Dosage: 15 MG, QD
     Route: 048
     Dates: start: 2015
  3. SODIUM [Concomitant]
     Active Substance: SODIUM
     Indication: PRODUCT USED FOR UNKNOWN INDICATION
     Dosage: UNK
     Route: 065

REACTIONS (3)
  - Incorrect drug administration duration [Unknown]
  - X-ray abnormal [Not Recovered/Not Resolved]
  - Inappropriate schedule of drug administration [Unknown]

NARRATIVE: CASE EVENT DATE: 201508
